FAERS Safety Report 10235216 (Version 1)
Quarter: 2014Q1

REPORT INFORMATION
  Report Type: Spontaneous
  Country: US (occurrence: None)
  Receive Date: 20140306
  Receipt Date: 20140306
  Transmission Date: 20141002
  Serious: Yes (Other)
  Sender: FDA-Public Use
  Company Number: 163-21880-13053758

PATIENT
  Age: 62 Year
  Sex: Male
  Weight: 90.3 kg

DRUGS (7)
  1. REVLIMIB (LENALIDOMIDE) (25 MILLIGRAM, CAPSULES) [Suspect]
     Indication: PLASMA CELL MYELOMA
     Dosage: 21 IN 21 D, PO
     Route: 048
     Dates: start: 201302
  2. DEXAMETHASONE (DECAMETHASONE) [Concomitant]
  3. ASPIRIN (ACETYLSALICYLIC ACID) [Concomitant]
  4. VICODIN (VICODIN) [Concomitant]
  5. QUINAPRIL HCTZ [Concomitant]
  6. DILTIAMZEM HCL (DILTIAZEM HYDROCHLORIDE) [Concomitant]
  7. MVI (MVI) [Concomitant]

REACTIONS (4)
  - Presyncope [None]
  - Dizziness [None]
  - Fall [None]
  - Hypotension [None]
